FAERS Safety Report 14508785 (Version 1)
Quarter: 2018Q1

REPORT INFORMATION
  Report Type: Spontaneous
  Country: US (occurrence: US)
  Receive Date: 20180209
  Receipt Date: 20180209
  Transmission Date: 20180509
  Serious: No
  Sender: FDA-Public Use
  Company Number: US-ASTRAZENECA-2018SE07808

PATIENT
  Age: 89 Year
  Sex: Male

DRUGS (3)
  1. PRILOSEC OTC [Suspect]
     Active Substance: OMEPRAZOLE MAGNESIUM
     Indication: GASTRIC DISORDER
     Route: 048
     Dates: start: 20180111
  2. PRILOSEC OTC [Suspect]
     Active Substance: OMEPRAZOLE MAGNESIUM
     Indication: CHEST DISCOMFORT
     Route: 048
     Dates: start: 20180111
  3. PRILOSEC OTC [Suspect]
     Active Substance: OMEPRAZOLE MAGNESIUM
     Indication: ABDOMINAL PAIN
     Route: 048
     Dates: start: 20180111

REACTIONS (5)
  - Product use in unapproved indication [Unknown]
  - Diarrhoea [Not Recovered/Not Resolved]
  - Inappropriate schedule of drug administration [Unknown]
  - Off label use [Unknown]
  - Overdose [Unknown]

NARRATIVE: CASE EVENT DATE: 20180111
